FAERS Safety Report 21797140 (Version 1)
Quarter: 2022Q4

REPORT INFORMATION
  Report Type: Spontaneous
  Country: IT (occurrence: IT)
  Receive Date: 20221230
  Receipt Date: 20221230
  Transmission Date: 20230112
  Serious: Yes (Hospitalization, Disabling)
  Sender: FDA-Public Use
  Company Number: IT-STRIDES ARCOLAB LIMITED-2022SP017585

PATIENT
  Age: 56 Year
  Sex: Male

DRUGS (4)
  1. TACROLIMUS [Suspect]
     Active Substance: TACROLIMUS
     Indication: Renal transplant
     Dosage: 3 MILLIGRAM, PER DAY
     Route: 065
  2. PREDNISOLONE [Suspect]
     Active Substance: PREDNISOLONE
     Indication: Purtscher retinopathy
     Dosage: 5 MILLIGRAM/DAILY
     Route: 065
  3. PREDNISOLONE [Suspect]
     Active Substance: PREDNISOLONE
     Indication: Renal transplant
     Dosage: UNK
     Route: 048
  4. MYCOPHENOLATE MOFETIL [Concomitant]
     Active Substance: MYCOPHENOLATE MOFETIL
     Indication: Renal transplant
     Dosage: 1 GRAM, PER DAY
     Route: 065

REACTIONS (12)
  - Purtscher retinopathy [Unknown]
  - Retinal haemorrhage [Unknown]
  - Macular ischaemia [Unknown]
  - Ocular hypertension [Recovered/Resolved]
  - Iris neovascularisation [Recovered/Resolved]
  - Myocardial necrosis [Recovered/Resolved]
  - Myositis [Recovered/Resolved]
  - Serous retinal detachment [Not Recovered/Not Resolved]
  - Visual impairment [Not Recovered/Not Resolved]
  - Retinal degeneration [Not Recovered/Not Resolved]
  - Renal tubular necrosis [Unknown]
  - Off label use [Unknown]
